FAERS Safety Report 5259015-6 (Version None)
Quarter: 2007Q1

REPORT INFORMATION
  Report Type: 
  Country: None (occurrence: None)
  Receive Date: 20070305
  Receipt Date: 20070221
  Transmission Date: 20070707
  Serious: Yes (Death)
  Sender: FDA-Public Use
  Company Number: GXKR2007DE01916

PATIENT
  Age: 16 Year
  Sex: Female

DRUGS (8)
  1. VINCRISTINE [Suspect]
     Indication: MEDULLOBLASTOMA
  2. ETOPOSIDE [Suspect]
     Indication: MEDULLOBLASTOMA
  3. METHOTREXATE [Suspect]
     Indication: MEDULLOBLASTOMA
  4. CISPLATIN [Suspect]
     Indication: MEDULLOBLASTOMA
  5. CYTARABINE [Suspect]
     Indication: MEDULLOBLASTOMA
  6. CARBOPLATIN [Suspect]
     Indication: MEDULLOBLASTOMA
  7. CYCLOPHOSPHAMIDE [Suspect]
     Indication: MEDULLOBLASTOMA
  8. RADIOTHERAPY (NO INGREDIENTS/SUBSTANCES) [Suspect]
     Indication: MEDULLOBLASTOMA
     Dosage: 55.2 GY TUMOR BED; 35.2 GY WHOLE BRAIN

REACTIONS (4)
  - CONVULSION [None]
  - GLIOMA [None]
  - INTRACRANIAL PRESSURE INCREASED [None]
  - NERVOUS SYSTEM DISORDER [None]
